FAERS Safety Report 23515097 (Version 1)
Quarter: 2024Q1

REPORT INFORMATION
  Report Type: Spontaneous
  Country: CA (occurrence: CA)
  Receive Date: 20240213
  Receipt Date: 20240213
  Transmission Date: 20240409
  Serious: Yes (Other)
  Sender: FDA-Public Use
  Company Number: CA-HLS-202400345

PATIENT
  Age: 52 Year
  Sex: Male
  Weight: 92 kg

DRUGS (4)
  1. ATROPINE [Concomitant]
     Active Substance: ATROPINE\ATROPINE SULFATE
     Route: 060
  2. CITALOPRAM [Concomitant]
     Active Substance: CITALOPRAM HYDROBROMIDE
     Dosage: 1 EVERY 1 DAYS?AMOUNT: 20 MILLIGRAM
     Route: 065
  3. CLOZAPINE [Suspect]
     Active Substance: CLOZAPINE
     Indication: Psychotic disorder
     Dosage: 1 EVERY 1 DAYS?AMOUNT: 200 MILLIGRAM?THERAPY DURATION: 58 DAYS
     Route: 048
  4. CLOZAPINE [Suspect]
     Active Substance: CLOZAPINE
     Indication: Psychotic disorder
     Dosage: TABLETS DOSAGE FORM
     Route: 065

REACTIONS (7)
  - Cough [None]
  - Ejection fraction decreased [None]
  - Myocardial injury [None]
  - Myocarditis [None]
  - Off label use [None]
  - Troponin increased [None]
  - White blood cell count increased [None]
